FAERS Safety Report 18028588 (Version 6)
Quarter: 2022Q1

REPORT INFORMATION
  Report Type: Spontaneous
  Country: GB (occurrence: GB)
  Receive Date: 20200715
  Receipt Date: 20220314
  Transmission Date: 20220423
  Serious: Yes (Hospitalization, Other)
  Sender: FDA-Public Use
  Company Number: GB-OTSUKA-2020_015165

PATIENT
  Age: 43 Year
  Sex: Female
  Weight: 105.6 kg

DRUGS (11)
  1. ARIPIPRAZOLE [Suspect]
     Active Substance: ARIPIPRAZOLE
     Indication: Bipolar disorder
     Dosage: 15 MILLIGRAM (AS A PRELOAD)
     Route: 065
  2. ABILIFY MAINTENA [Suspect]
     Active Substance: ARIPIPRAZOLE
     Indication: Bipolar disorder
     Dosage: 400 MILLIGRAM, MONTHLY (400 MILLIGRAM,400 MG, QM (ONCE MONTHLY))
     Route: 065
  3. ABILIFY MAINTENA [Suspect]
     Active Substance: ARIPIPRAZOLE
     Dosage: 400 MILLIGRAM, MONTHLY (400 MILLIGRAM,400 MG, QM (ONCE MONTHLY))
     Route: 065
  4. DEPAKOTE [Suspect]
     Active Substance: DIVALPROEX SODIUM
     Indication: Bipolar disorder
     Dosage: 1000 MG, BID
     Route: 065
  5. DEPAKOTE [Suspect]
     Active Substance: DIVALPROEX SODIUM
     Dosage: 4000 MG, QD (2000 MG, BID)
     Route: 065
  6. DEPAKOTE [Suspect]
     Active Substance: DIVALPROEX SODIUM
     Dosage: 2000 MILLIGRAM, BID
     Route: 065
  7. DEPAKOTE [Suspect]
     Active Substance: DIVALPROEX SODIUM
     Dosage: 2000 MILLIGRAM, QD (1000 MG, BID )
     Route: 065
  8. CLONAZEPAM [Concomitant]
     Active Substance: CLONAZEPAM
     Indication: Product used for unknown indication
     Dosage: 1 MILLIGRAM, QD, 0.5 MG, BID
     Route: 065
  9. CLONAZEPAM [Concomitant]
     Active Substance: CLONAZEPAM
     Dosage: 2 MILLIGRAM, QD, ONCE A DAY(1 MILLIGRAM, ONCE A DAY,(0.5 MG, BID)
     Route: 065
  10. AMISULPRIDE [Concomitant]
     Active Substance: AMISULPRIDE
     Indication: Bipolar disorder
     Dosage: 400 MILLIGRAM, QD (200 MG, BID)
     Route: 065
  11. AMISULPRIDE [Concomitant]
     Active Substance: AMISULPRIDE
     Dosage: 800 MILLIGRAM, QD (400 MILLIGRAM, ONCE A DAY, (200 MG, BID))
     Route: 065

REACTIONS (3)
  - Bipolar disorder [Not Recovered/Not Resolved]
  - Psychotic disorder [Unknown]
  - Drug ineffective for unapproved indication [Unknown]
